FAERS Safety Report 11149849 (Version 1)
Quarter: 2015Q2

REPORT INFORMATION
  Report Type: Spontaneous
  Country: US (occurrence: US)
  Receive Date: 20150529
  Receipt Date: 20150529
  Transmission Date: 20150821
  Serious: Yes (Other)
  Sender: FDA-Public Use
  Company Number: US-MALLINCKRODT-T201501582

PATIENT
  Sex: Male

DRUGS (5)
  1. MORPHINE [Suspect]
     Active Substance: MORPHINE
     Indication: PAIN
     Dosage: 30 MG, TID
     Route: 048
     Dates: start: 200702
  2. LEVOTHYROXINE [Concomitant]
     Active Substance: LEVOTHYROXINE
     Indication: SECONDARY HYPOTHYROIDISM
     Dosage: 0.05 MG, QD
  3. DULOXETINE [Concomitant]
     Active Substance: DULOXETINE
     Dosage: 25 MG, QD
  4. DEPO-TESTOSTERONE [Concomitant]
     Active Substance: TESTOSTERONE CYPIONATE
     Indication: SECONDARY HYPOGONADISM
     Dosage: 200 MG Q 2 WEEKS
     Route: 065
  5. MORPHINE [Suspect]
     Active Substance: MORPHINE
     Indication: PAIN
     Dosage: UNK
     Route: 037
     Dates: start: 1995, end: 200702

REACTIONS (4)
  - Secondary adrenocortical insufficiency [Recovering/Resolving]
  - Growth hormone deficiency [Recovering/Resolving]
  - Secondary hypogonadism [Unknown]
  - Secondary hypothyroidism [Unknown]
